FAERS Safety Report 9059940 (Version 1)
Quarter: 2013Q1

REPORT INFORMATION
  Report Type: Spontaneous
  Country: US (occurrence: None)
  Receive Date: 20130207
  Receipt Date: 20130207
  Transmission Date: 20140127
  Serious: Yes (Hospitalization)
  Sender: FDA-Public Use
  Company Number: None

PATIENT
  Age: 76 Year
  Sex: Male
  Weight: 83 kg

DRUGS (1)
  1. DENOSUMAB XGEVA [Suspect]
     Indication: PROSTATE CANCER METASTATIC
     Dosage: 120 MG EVERY 28 DAYS, SQ

REACTIONS (2)
  - Fatigue [None]
  - Nausea [None]
